FAERS Safety Report 21408002 (Version 2)
Quarter: 2022Q4

REPORT INFORMATION
  Report Type: Spontaneous
  Country: US (occurrence: US)
  Receive Date: 20221004
  Receipt Date: 20221228
  Transmission Date: 20230113
  Serious: No
  Sender: FDA-Public Use
  Company Number: US-ORGANON-O2209USA001494

PATIENT
  Sex: Female
  Weight: 66.667 kg

DRUGS (4)
  1. ASMANEX [Suspect]
     Active Substance: MOMETASONE FUROATE
     Indication: COVID-19
     Dosage: UNK
     Dates: start: 202208, end: 2022
  2. ASMANEX [Suspect]
     Active Substance: MOMETASONE FUROATE
     Indication: Asthma
     Dosage: 1 INHALATION TWICE DAILY (30 DOSE)
     Dates: start: 20220915, end: 202209
  3. ASMANEX [Suspect]
     Active Substance: MOMETASONE FUROATE
     Indication: COVID-19
     Dosage: 1 INHALATION TWICE DAILY (30 DOSE)
     Dates: start: 20220919
  4. ASMANEX [Suspect]
     Active Substance: MOMETASONE FUROATE
     Indication: Asthma

REACTIONS (6)
  - Dyspnoea [Not Recovered/Not Resolved]
  - Headache [Not Recovered/Not Resolved]
  - Product use in unapproved indication [Unknown]
  - Device malfunction [Unknown]
  - Poor quality device used [Unknown]
  - Device malfunction [Unknown]

NARRATIVE: CASE EVENT DATE: 20220101
